FAERS Safety Report 23375895 (Version 2)
Quarter: 2024Q1

REPORT INFORMATION
  Report Type: Report from Study
  Country: TW (occurrence: TW)
  Receive Date: 20240108
  Receipt Date: 20240116
  Transmission Date: 20240410
  Serious: Yes (Hospitalization)
  Sender: FDA-Public Use
  Company Number: TW-ABBVIE-5571818

PATIENT

DRUGS (4)
  1. RINVOQ [Suspect]
     Active Substance: UPADACITINIB
     Indication: Dermatitis atopic
     Dosage: 30 MILLIGRAM
     Route: 048
     Dates: start: 20230508
  2. FEXOFENADINE [Concomitant]
     Active Substance: FEXOFENADINE HYDROCHLORIDE
     Indication: Dermatitis atopic
     Dates: start: 20230410
  3. DIETARY SUPPLEMENT\HERBALS\MILK THISTLE [Concomitant]
     Active Substance: MILK THISTLE
     Indication: Dermatitis atopic
     Dosage: TIME INTERVAL: 0.33333333 DAYS
     Dates: start: 20231225
  4. AMITRIPTYLINE [Concomitant]
     Active Substance: AMITRIPTYLINE
     Indication: Dermatitis atopic
     Dosage: HS
     Dates: start: 20231225

REACTIONS (3)
  - Eczema herpeticum [Unknown]
  - Skin discharge [Unknown]
  - Skin disorder [Unknown]

NARRATIVE: CASE EVENT DATE: 20240103
